FAERS Safety Report 7229163-X (Version None)
Quarter: 2011Q1

REPORT INFORMATION
  Report Type: 
  Country: None (occurrence: None)
  Receive Date: 20110117
  Receipt Date: 20110112
  Transmission Date: 20110831
  Serious: Yes (Other)
  Sender: FDA-Public Use
  Company Number: JP-PFIZER INC-2010157253

PATIENT
  Age: 47 Year
  Sex: Male

DRUGS (3)
  1. PERDIPINE [Concomitant]
     Dosage: 20 MG/DAY
  2. DEPAS [Concomitant]
     Dosage: 0.5 MG/DAY
  3. CHAMPIX [Suspect]
     Indication: NICOTINE DEPENDENCE
     Dosage: 1 MG/DAY
     Route: 048
     Dates: start: 20101009, end: 20101120

REACTIONS (3)
  - DYSGEUSIA [None]
  - BLOOD CREATINE PHOSPHOKINASE INCREASED [None]
  - NAUSEA [None]
